FAERS Safety Report 15699049 (Version 1)
Quarter: 2018Q4

REPORT INFORMATION
  Report Type: Report from Study
  Country: KR (occurrence: KR)
  Receive Date: 20181207
  Receipt Date: 20181207
  Transmission Date: 20190205
  Serious: Yes (Death, Hospitalization)
  Sender: FDA-Public Use
  Company Number: KR-ROCHE-2225863

PATIENT
  Age: 72 Year
  Sex: Male
  Weight: 61.5 kg

DRUGS (13)
  1. SURFOLASE [Concomitant]
     Indication: IDIOPATHIC PULMONARY FIBROSIS
     Route: 048
     Dates: start: 20180824
  2. ANYCOUGH [Concomitant]
     Active Substance: THEOBROMINE
     Indication: IDIOPATHIC PULMONARY FIBROSIS
     Route: 048
     Dates: start: 20180824
  3. PARAMACET SEMI [Concomitant]
     Indication: CANCER PAIN
     Dosage: 162.5 /18.75 MG
     Route: 048
     Dates: start: 20181008
  4. NORVASC [Concomitant]
     Active Substance: AMLODIPINE BESYLATE
     Indication: HYPERTENSION
     Route: 048
  5. ATEZOLIZUMAB. [Suspect]
     Active Substance: ATEZOLIZUMAB
     Indication: NON-SMALL CELL LUNG CANCER METASTATIC
     Route: 042
     Dates: start: 20181108, end: 20181108
  6. LEVOTICS CR [Concomitant]
     Indication: COUGH
     Route: 048
     Dates: start: 20180928
  7. NEURONTIN (SOUTH KOREA) [Concomitant]
     Indication: PROPHYLAXIS
     Dosage: PROPHYLAXIS OF NEUROPATHY
     Route: 048
     Dates: start: 20180912
  8. SYNATURA [Concomitant]
     Indication: COUGH
     Dosage: SYRUP
     Route: 048
     Dates: start: 20180912
  9. LAMINA-G [Concomitant]
     Indication: PROPHYLAXIS
     Dosage: PROPHYLAXIS OF GASTRIC ULCER
     Route: 048
     Dates: start: 20180912
  10. TRESTAN [Concomitant]
     Indication: PROPHYLAXIS
     Dosage: PROPHYLAXIS FOR ANOREXIA
     Route: 048
     Dates: start: 20180912
  11. NICETILE [Concomitant]
     Active Substance: ACETYLCARNITINE HYDROCHLORIDE
     Indication: CEREBRAL INFARCTION
     Route: 048
     Dates: start: 20180912
  12. CURAN [Concomitant]
     Active Substance: RANITIDINE HYDROCHLORIDE
     Indication: PROPHYLAXIS
     Dosage: PROPHYLAXIS OF GASTRIC ULCER
     Route: 048
     Dates: start: 20180928
  13. ANTIBIO [Concomitant]
     Indication: PROPHYLAXIS
     Dosage: PROPHYLAXIS OF INTESTINAL MUCOSA
     Route: 048
     Dates: start: 20180912

REACTIONS (2)
  - Pneumonitis [Fatal]
  - Back pain [Fatal]

NARRATIVE: CASE EVENT DATE: 20181111
